FAERS Safety Report 8873170 (Version 2)
Quarter: 2012Q4

REPORT INFORMATION
  Report Type: 
  Country: US (occurrence: US)
  Receive Date: 20121029
  Receipt Date: 20121116
  Transmission Date: 20130627
  Serious: Yes (Hospitalization, Other)
  Sender: FDA-Public Use
  Company Number: US-TEVA-367036USA

PATIENT
  Sex: Male
  Weight: 96.25 kg

DRUGS (4)
  1. CLOZAPINE [Suspect]
     Dosage: 50 mg at HS
     Route: 048
  2. XANAX [Suspect]
     Dosage: .25 mg
     Route: 048
  3. NEXIUM [Concomitant]
     Indication: GASTRIC DISORDER
     Route: 048
  4. PRILOSEC [Concomitant]
     Indication: GASTRIC DISORDER
     Route: 048

REACTIONS (14)
  - Withdrawal syndrome [Unknown]
  - Delirium [Recovered/Resolved]
  - Suicide attempt [Recovered/Resolved]
  - Asthenia [Not Recovered/Not Resolved]
  - Adrenal disorder [Not Recovered/Not Resolved]
  - Irritable bowel syndrome [Not Recovered/Not Resolved]
  - Sedation [Not Recovered/Not Resolved]
  - Dry mouth [Not Recovered/Not Resolved]
  - Abdominal pain upper [Recovered/Resolved]
  - Decreased appetite [Recovered/Resolved]
  - Muscle spasms [Recovered/Resolved]
  - Chest pain [Recovered/Resolved]
  - Restlessness [Recovered/Resolved]
  - Insomnia [Recovered/Resolved]
